FAERS Safety Report 6836280 (Version 1)
Quarter: 2020Q3

REPORT INFORMATION
  Report Type: Report from Study
  Country: US (occurrence: US)
  Receive Date: 20081208
  Receipt Date: 20081208
  Transmission Date: 20201104
  Serious: Yes (Other)
  Sender: FDA-Public Use
  Company Number: US-ROCHE-599766

PATIENT
  Age: 47 Year
  Sex: Female
  Weight: 66.8 kg

DRUGS (1)
  1. IBANDRONIC ACID. [Suspect]
     Active Substance: IBANDRONIC ACID
     Dosage: PATIENT TOOK DRUG 30 MINUTES PRIOR EATING OR DRINKING TOTAL DOSE TAKEN:300 MG LAST DOSE:20 NOV 2008
     Route: 048
     Dates: start: 20081115

REACTIONS (1)
  - Urticaria [Not Recovered/Not Resolved]

NARRATIVE: CASE EVENT DATE: 20081120
